FAERS Safety Report 14224189 (Version 1)
Quarter: 2017Q4

REPORT INFORMATION
  Report Type: Spontaneous
  Country: JP (occurrence: JP)
  Receive Date: 20171126
  Receipt Date: 20171126
  Transmission Date: 20180321
  Serious: Yes (Other)
  Sender: FDA-Public Use
  Company Number: JP-CELGENEUS-JPN-20171107227

PATIENT

DRUGS (1)
  1. REVLIMID [Suspect]
     Active Substance: LENALIDOMIDE
     Indication: PRODUCT USED FOR UNKNOWN INDICATION
     Route: 048

REACTIONS (12)
  - Infection [Unknown]
  - Bone marrow failure [Unknown]
  - Gait disturbance [Unknown]
  - Chest pain [Unknown]
  - Embolism [Unknown]
  - Decreased appetite [Unknown]
  - Haemorrhage [Unknown]
  - Psychiatric symptom [Unknown]
  - Hypersensitivity [Unknown]
  - Constipation [Unknown]
  - Sleep disorder [Unknown]
  - Neuropathy peripheral [Unknown]
